FAERS Safety Report 8510591 (Version 2)
Quarter: 2013Q3

REPORT INFORMATION
  Report Type: Report from Study
  Country: BE (occurrence: BE)
  Receive Date: 20120413
  Receipt Date: 20130826
  Transmission Date: 20140515
  Serious: Yes (Other)
  Sender: FDA-Public Use
  Company Number: PHHY2012BE006865

PATIENT
  Age: 49 Year
  Sex: Female

DRUGS (2)
  1. FTY 720 [Suspect]
     Dosage: 0.5 MG, QD
     Dates: start: 20111206, end: 20120715
  2. SIPRALEXA [Concomitant]
     Indication: DEPRESSION

REACTIONS (3)
  - Mitral valve incompetence [Unknown]
  - Hypertension [Recovering/Resolving]
  - Fatigue [Recovering/Resolving]
